FAERS Safety Report 14545854 (Version 2)
Quarter: 2018Q1

REPORT INFORMATION
  Report Type: Report from Study
  Country: US (occurrence: US)
  Receive Date: 20180219
  Receipt Date: 20180222
  Transmission Date: 20180509
  Serious: Yes (Death)
  Sender: FDA-Public Use
  Company Number: US-ROCHE-2074398

PATIENT
  Sex: Male

DRUGS (1)
  1. VALGANCICLOVIR. [Suspect]
     Active Substance: VALGANCICLOVIR
     Indication: RENAL TRANSPLANT
     Route: 065

REACTIONS (1)
  - Death [Fatal]
